FAERS Safety Report 10353751 (Version 2)
Quarter: 2014Q3

REPORT INFORMATION
  Report Type: Spontaneous
  Country: CA (occurrence: CA)
  Receive Date: 20140731
  Receipt Date: 20140929
  Transmission Date: 20150326
  Serious: Yes (Other)
  Sender: FDA-Public Use
  Company Number: CA-AMGEN-CANSP2014056096

PATIENT

DRUGS (1)
  1. VECTIBIX [Suspect]
     Active Substance: PANITUMUMAB
     Indication: COLORECTAL CANCER METASTATIC
     Dosage: UNK
     Route: 065

REACTIONS (7)
  - Rash pustular [Unknown]
  - Paronychia [Unknown]
  - Pruritus [Unknown]
  - Pain [Unknown]
  - Skin fissures [Unknown]
  - Skin toxicity [Unknown]
  - Xerosis [Unknown]
